FAERS Safety Report 10083181 (Version 4)
Quarter: 2015Q4

REPORT INFORMATION
  Report Type: Report from Study
  Country: US (occurrence: US)
  Receive Date: 20140417
  Receipt Date: 20151019
  Transmission Date: 20160304
  Serious: Yes (Other)
  Sender: FDA-Public Use
  Company Number: US-ROCHE-1268048

PATIENT
  Age: 56 Year
  Sex: Female
  Weight: 82 kg

DRUGS (14)
  1. PREVACID [Concomitant]
     Active Substance: LANSOPRAZOLE
     Indication: GASTROOESOPHAGEAL REFLUX DISEASE
     Route: 048
  2. ACTEMRA [Suspect]
     Active Substance: TOCILIZUMAB
     Dosage: 690-700MG BASED ON WEIGHT 87 KG
     Route: 042
     Dates: start: 201302, end: 201403
  3. ACTEMRA [Suspect]
     Active Substance: TOCILIZUMAB
     Dosage: 336 MG
     Route: 042
  4. FLUOCINONIDE. [Concomitant]
     Active Substance: FLUOCINONIDE
     Dosage: APPLY TO THE RED AREAS ON THE ARMS
     Route: 061
  5. ACTEMRA [Suspect]
     Active Substance: TOCILIZUMAB
     Indication: RHEUMATOID ARTHRITIS
     Route: 042
     Dates: start: 20130708
  6. ECHINACEA [Concomitant]
     Active Substance: ECHINACEA, UNSPECIFIED
     Route: 048
  7. ERGOCALCIFEROL. [Concomitant]
     Active Substance: ERGOCALCIFEROL
     Route: 048
  8. NAPROXEN. [Concomitant]
     Active Substance: NAPROXEN
     Dosage: 2 TIMES DAILY AFTER MEALS.
     Route: 048
  9. FOLIC ACID. [Concomitant]
     Active Substance: FOLIC ACID
     Indication: RHEUMATOID ARTHRITIS
     Route: 048
  10. DESONIDE CREAM [Concomitant]
     Dosage: 2 TIMES A DAY.
     Route: 061
  11. LANSOPRAZOLE. [Concomitant]
     Active Substance: LANSOPRAZOLE
  12. METHOTREXATE [Concomitant]
     Active Substance: METHOTREXATE
     Indication: RHEUMATOID ARTHRITIS
     Route: 048
  13. FOLIC ACID. [Concomitant]
     Active Substance: FOLIC ACID
     Route: 048
  14. OMEPRAZOL [Concomitant]
     Active Substance: OMEPRAZOLE
     Route: 048

REACTIONS (6)
  - Leukopenia [Recovered/Resolved]
  - Thrombocytopenia [Recovered/Resolved]
  - Overlap syndrome [Unknown]
  - Butterfly rash [Recovered/Resolved]
  - Venous occlusion [Unknown]
  - Hypocomplementaemia [Recovered/Resolved]

NARRATIVE: CASE EVENT DATE: 20130708
